FAERS Safety Report 5906789-4 (Version None)
Quarter: 2008Q3

REPORT INFORMATION
  Report Type: 
  Country: None (occurrence: None)
  Receive Date: 20080929
  Receipt Date: 20080915
  Transmission Date: 20090109
  Serious: Yes (Hospitalization)
  Sender: FDA-Public Use
  Company Number: 08US001089

PATIENT
  Age: 50 Year
  Sex: Male
  Weight: 113.4 kg

DRUGS (1)
  1. LITHIUM CARBONATE [Suspect]
     Indication: BIPOLAR DISORDER
     Dosage: 300 MG, TID, ORAL
     Route: 048
     Dates: start: 19760101, end: 20080701

REACTIONS (3)
  - MANIA [None]
  - MYOCARDIAL INFARCTION [None]
  - RENAL IMPAIRMENT [None]
